FAERS Safety Report 6066428-1 (Version None)
Quarter: 2009Q1

REPORT INFORMATION
  Report Type: 
  Country: None (occurrence: None)
  Receive Date: 20090205
  Receipt Date: 20090202
  Transmission Date: 20090719
  Serious: Yes (Hospitalization)
  Sender: FDA-Public Use
  Company Number: A0766111A

PATIENT
  Age: 46 Year
  Sex: Female

DRUGS (7)
  1. NICORETTE [Suspect]
     Indication: SMOKING CESSATION THERAPY
  2. NICORETTE [Suspect]
     Indication: SMOKING CESSATION THERAPY
  3. NICODERM CQ [Suspect]
     Indication: SMOKING CESSATION THERAPY
     Route: 062
  4. NICODERM CQ [Suspect]
     Indication: SMOKING CESSATION THERAPY
     Route: 062
  5. NICODERM CQ [Suspect]
     Indication: SMOKING CESSATION THERAPY
     Route: 062
  6. LEXAPRO [Concomitant]
     Route: 048
  7. IBUPROFEN [Concomitant]
     Route: 048

REACTIONS (8)
  - APHTHOUS STOMATITIS [None]
  - DRUG ADMINISTRATION ERROR [None]
  - HEART RATE DECREASED [None]
  - INTENTIONAL DRUG MISUSE [None]
  - MALAISE [None]
  - PALPITATIONS [None]
  - TOOTH LOSS [None]
  - TRANSIENT ISCHAEMIC ATTACK [None]
